FAERS Safety Report 8382077-4 (Version None)
Quarter: 2012Q2

REPORT INFORMATION
  Report Type: 
  Country: None (occurrence: None)
  Receive Date: 20120524
  Receipt Date: 20120509
  Transmission Date: 20120825
  Serious: Yes (Other)
  Sender: FDA-Public Use
  Company Number: IL-JNJFOC-20120509971

PATIENT
  Age: 17 Year
  Sex: Female

DRUGS (1)
  1. RISPERDAL [Suspect]
     Indication: ABNORMAL BEHAVIOUR
     Route: 048

REACTIONS (3)
  - NASAL CONGESTION [None]
  - HAEMOPTYSIS [None]
  - MUSCULOSKELETAL CHEST PAIN [None]
